FAERS Safety Report 11326808 (Version 1)
Quarter: 2015Q3

REPORT INFORMATION
  Report Type: Report from Study
  Country: CA (occurrence: CA)
  Receive Date: 20150731
  Receipt Date: 20150731
  Transmission Date: 20151125
  Serious: Yes (Hospitalization)
  Sender: FDA-Public Use
  Company Number: CA-PFIZER INC-2015069238

PATIENT
  Age: 59 Year
  Sex: Female
  Weight: 65 kg

DRUGS (9)
  1. PALAFER [Concomitant]
     Active Substance: FERROUS FUMARATE
     Indication: ANAEMIA
     Dosage: 300 MG, SINGLE
     Route: 048
     Dates: start: 20150202
  2. IMODIUM [Concomitant]
     Active Substance: LOPERAMIDE HYDROCHLORIDE
     Indication: PROPHYLAXIS AGAINST DIARRHOEA
     Dosage: 2 MG, AS NEEDED
     Route: 048
     Dates: start: 20150206
  3. ALTACE [Suspect]
     Active Substance: RAMIPRIL
     Indication: LEFT VENTRICULAR DYSFUNCTION
     Dosage: 5 MG, DAILY
     Route: 048
     Dates: start: 20150115
  4. SUNITINIB MALATE. [Suspect]
     Active Substance: SUNITINIB MALATE
     Indication: METASTATIC RENAL CELL CARCINOMA
     Dosage: 50 MG, 1X/DAY
     Dates: start: 20150210, end: 20150220
  5. COREG [Suspect]
     Active Substance: CARVEDILOL
     Dosage: 12.5 MG, 2X/DAY
     Route: 048
     Dates: start: 20150209, end: 20150220
  6. COREG [Suspect]
     Active Substance: CARVEDILOL
     Dosage: 6.25 MG, 1X/DAY
     Route: 048
     Dates: start: 20150221, end: 20150223
  7. COREG [Suspect]
     Active Substance: CARVEDILOL
     Indication: LEFT VENTRICULAR DYSFUNCTION
     Dosage: 6.25 MG, 2X/DAY
     Route: 048
     Dates: start: 20150127, end: 20150208
  8. TYLENOL [Concomitant]
     Active Substance: ACETAMINOPHEN
     Indication: PAIN
     Dosage: 500 MG, AS NEEDED
     Route: 048
     Dates: start: 2012
  9. STEMETIL [Concomitant]
     Active Substance: PROCHLORPERAZINE MALEATE
     Indication: PROPHYLAXIS OF NAUSEA AND VOMITING
     Dosage: 10 MG, AS NEEDED
     Route: 048
     Dates: start: 20150206

REACTIONS (2)
  - Hypotension [Recovered/Resolved]
  - Dehydration [Recovered/Resolved]

NARRATIVE: CASE EVENT DATE: 20150220
